FAERS Safety Report 8663780 (Version 4)
Quarter: 2012Q4

REPORT INFORMATION
  Report Type: Report from Study
  Country: US (occurrence: KE)
  Receive Date: 20120713
  Receipt Date: 20121116
  Transmission Date: 20130627
  Serious: Yes (Death, Life-Threatening, Hospitalization, Congenital Anomaly)
  Sender: FDA-Public Use
  Company Number: US-GILEAD-2012-0057756

PATIENT
  Age: 0 Year
  Sex: Male

DRUGS (6)
  1. EMTRICITABINE/TENOFOVIR DISOPROXIL FUMARATE [Suspect]
     Indication: PROPHYLAXIS AGAINST HIV INFECTION
     Dosage: UNK
     Route: 064
     Dates: start: 20081210, end: 20110428
  2. BACITRACIN W/POLYMYXIN B SULFATE [Concomitant]
     Dosage: UNK
     Route: 064
     Dates: start: 20110405, end: 20110416
  3. BISMUTH SUBGALLATE [Concomitant]
     Dosage: 60 mg, UNK
     Route: 064
     Dates: start: 20110405, end: 20110416
  4. BISMUTH OXIDE [Concomitant]
     Dosage: 24 mg, UNK
     Route: 064
     Dates: start: 20110405, end: 20110416
  5. ZINC OXIDE [Concomitant]
     Dosage: 29 mg, UNK
     Route: 064
     Dates: start: 20110405, end: 20110416
  6. FOLIC ACID [Concomitant]
     Indication: SUPPLEMENTATION THERAPY
     Dosage: UNK
     Route: 064
     Dates: start: 20110511

REACTIONS (2)
  - Trisomy 21 [Fatal]
  - Talipes [Not Recovered/Not Resolved]
